FAERS Safety Report 16630182 (Version 3)
Quarter: 2019Q3

REPORT INFORMATION
  Report Type: Spontaneous
  Country: US (occurrence: US)
  Receive Date: 20190725
  Receipt Date: 20190920
  Transmission Date: 20191004
  Serious: Yes (Hospitalization)
  Sender: FDA-Public Use
  Company Number: US-VIFOR (INTERNATIONAL) INC.-VIT-2019-07068

PATIENT
  Age: 85 Year
  Sex: Female
  Weight: 75.36 kg

DRUGS (15)
  1. ELIQUIS [Concomitant]
     Active Substance: APIXABAN
  2. HYDROCHLOROTHIAZIDE. [Concomitant]
     Active Substance: HYDROCHLOROTHIAZIDE
  3. TRAMADOL. [Concomitant]
     Active Substance: TRAMADOL
  4. XARELTO [Concomitant]
     Active Substance: RIVAROXABAN
  5. VELTASSA [Suspect]
     Active Substance: PATIROMER
     Indication: HYPERKALAEMIA
     Route: 048
     Dates: start: 20190621
  6. SIMVASTATIN. [Concomitant]
     Active Substance: SIMVASTATIN
  7. AMIODARONE [Concomitant]
     Active Substance: AMIODARONE
  8. FISH OIL [Concomitant]
     Active Substance: FISH OIL
  9. LOSARTAN. [Concomitant]
     Active Substance: LOSARTAN
  10. VITAMIN B12 [Concomitant]
     Active Substance: CYANOCOBALAMIN
  11. CALCITRIOL. [Concomitant]
     Active Substance: CALCITRIOL
     Route: 048
  12. GARLIC. [Concomitant]
     Active Substance: GARLIC
  13. IRON [Concomitant]
     Active Substance: IRON
  14. LORATADINE. [Concomitant]
     Active Substance: LORATADINE
  15. VITAMIN C [Concomitant]
     Active Substance: ASCORBIC ACID

REACTIONS (3)
  - Feeling abnormal [Unknown]
  - Thrombosis [Unknown]
  - Back pain [Unknown]

NARRATIVE: CASE EVENT DATE: 2019
